FAERS Safety Report 9531580 (Version 1)
Quarter: 2013Q3

REPORT INFORMATION
  Report Type: Spontaneous
  Country: BR (occurrence: BR)
  Receive Date: 20130918
  Receipt Date: 20130918
  Transmission Date: 20140515
  Serious: Yes (Hospitalization, Other)
  Sender: FDA-Public Use
  Company Number: BR-PFIZER INC-2013267978

PATIENT
  Age: 77 Year
  Sex: Male

DRUGS (1)
  1. EFEXOR XR [Suspect]
     Indication: DEPRESSION
     Dosage: 1 CAPSULE (75 MG), 1X/DAY
     Route: 048
     Dates: start: 20130216

REACTIONS (2)
  - Gastrointestinal carcinoma [Unknown]
  - Drug ineffective [Recovering/Resolving]
